FAERS Safety Report 5861272-X (Version None)
Quarter: 2008Q3

REPORT INFORMATION
  Report Type: 
  Country: None (occurrence: None)
  Receive Date: 20080827
  Receipt Date: 20080403
  Transmission Date: 20090109
  Serious: No
  Sender: FDA-Public Use
  Company Number: US-ABBOTT-08P-163-0445295-00

PATIENT
  Sex: Female
  Weight: 81.72 kg

DRUGS (5)
  1. COATED PDS [Suspect]
     Indication: HIGH DENSITY LIPOPROTEIN DECREASED
     Dosage: 500 MG AT NIGHT
     Route: 048
     Dates: start: 20080201, end: 20080201
  2. ATORVASTATIN CALCIUM [Concomitant]
     Indication: BLOOD CHOLESTEROL INCREASED
     Route: 048
     Dates: start: 20060101
  3. LISINOPRIL [Concomitant]
     Indication: HYPERTENSION
     Route: 048
     Dates: start: 20060101
  4. ATENOLOL [Concomitant]
     Indication: HYPERTENSION
     Route: 048
     Dates: start: 20030101
  5. HYOSCYAMINE [Concomitant]
     Indication: POST GASTRIC SURGERY SYNDROME
     Route: 048
     Dates: start: 20040101

REACTIONS (2)
  - PRURITUS GENERALISED [None]
  - RASH GENERALISED [None]
